FAERS Safety Report 5838128-1 (Version None)
Quarter: 2008Q3

REPORT INFORMATION
  Report Type: 
  Country: None (occurrence: None)
  Receive Date: 20080808
  Receipt Date: 20080730
  Transmission Date: 20090109
  Serious: Yes (Death)
  Sender: FDA-Public Use
  Company Number: IR-JNJFOC-20080707246

PATIENT
  Age: 29 Year
  Sex: Male

DRUGS (1)
  1. TRAMADOL HCL [Suspect]
     Indication: SUICIDE ATTEMPT
     Route: 048

REACTIONS (4)
  - COMA [None]
  - COMPLETED SUICIDE [None]
  - CONVULSION [None]
  - OVERDOSE [None]
